FAERS Safety Report 25056950 (Version 1)
Quarter: 2025Q1

REPORT INFORMATION
  Report Type: Spontaneous
  Country: ZA (occurrence: ZA)
  Receive Date: 20250310
  Receipt Date: 20250310
  Transmission Date: 20250409
  Serious: Yes (Life-Threatening, Hospitalization, Other)
  Sender: ALEXION PHARMACEUTICALS
  Company Number: ZA-AstraZeneca-CH-00821621A

PATIENT
  Age: 95 Year

DRUGS (7)
  1. DAPAGLIFLOZIN PROPANEDIOL [Suspect]
     Active Substance: DAPAGLIFLOZIN PROPANEDIOL
     Indication: Diabetes mellitus
     Route: 065
  2. Pantocid [Concomitant]
     Indication: Helicobacter gastritis
  3. Pantocid [Concomitant]
     Indication: Gastrooesophageal reflux disease
  4. Pantocid [Concomitant]
     Indication: Gastrinoma
  5. Pantocid [Concomitant]
     Indication: Dyspepsia
  6. ALFACALCIDOL [Concomitant]
     Active Substance: ALFACALCIDOL
     Indication: Osteoporosis
  7. MACRODANTIN [Concomitant]
     Active Substance: NITROFURANTOIN
     Indication: Urinary tract infection

REACTIONS (2)
  - Neoplasm malignant [Recovered/Resolved]
  - Myocardial infarction [Recovered/Resolved]
